FAERS Safety Report 6057124-5 (Version None)
Quarter: 2009Q1

REPORT INFORMATION
  Report Type: 
  Country: None (occurrence: None)
  Receive Date: 20090126
  Receipt Date: 20090107
  Transmission Date: 20090719
  Serious: Yes (Death)
  Sender: FDA-Public Use
  Company Number: B0553724A

PATIENT
  Age: 27 Year
  Sex: Male

DRUGS (4)
  1. PAROXETINE HYDROCHLORIDE [Suspect]
     Dosage: ORAL
     Route: 048
  2. DIAMORPHINE HYDROCHLORIDE (FORMULATION UNKNOWN) (DIAMORPHINE HYDROCHLO [Suspect]
  3. CLONAZEPAM [Suspect]
  4. ZOLPIDEM TARTRATE [Suspect]

REACTIONS (2)
  - CARDIO-RESPIRATORY ARREST [None]
  - DRUG ABUSE [None]
